FAERS Safety Report 18742013 (Version 17)
Quarter: 2024Q3

REPORT INFORMATION
  Report Type: Spontaneous
  Country: CA (occurrence: CA)
  Receive Date: 20210114
  Receipt Date: 20240816
  Transmission Date: 20241016
  Serious: Yes (Hospitalization, Disabling, Congenital Anomaly, Other)
  Sender: SANOFI AVENTIS
  Company Number: CA-SA-SAC20210112000027

PATIENT
  Age: 80 Year
  Sex: Male
  Weight: 89 kg

DRUGS (372)
  1. TAMSULOSIN HYDROCHLORIDE [Suspect]
     Active Substance: TAMSULOSIN HYDROCHLORIDE
     Dosage: UNK
     Route: 065
  2. INFLUENZA VIRUS VACCINE [Suspect]
     Active Substance: INFLUENZA VIRUS VACCINE
     Indication: Immunisation
     Route: 051
  3. INFLUENZA VIRUS VACCINE [Suspect]
     Active Substance: INFLUENZA VIRUS VACCINE
     Indication: Prophylaxis
  4. INFLUENZA VIRUS VACCINE [Suspect]
     Active Substance: INFLUENZA VIRUS VACCINE
     Indication: Immunisation
  5. INFLUENZA VIRUS VACCINE [Suspect]
     Active Substance: INFLUENZA VIRUS VACCINE
     Route: 065
  6. INFLUENZA VIRUS VACCINE [Suspect]
     Active Substance: INFLUENZA VIRUS VACCINE
  7. INFLUENZA VIRUS VACCINE [Suspect]
     Active Substance: INFLUENZA VIRUS VACCINE
     Route: 065
  8. INFLUENZA VIRUS VACCINE [Suspect]
     Active Substance: INFLUENZA VIRUS VACCINE
  9. INFLUENZA VIRUS VACCINE [Suspect]
     Active Substance: INFLUENZA VIRUS VACCINE
     Route: 065
  10. INFLUENZA VIRUS VACCINE [Suspect]
     Active Substance: INFLUENZA VIRUS VACCINE
  11. INFLUENZA VIRUS VACCINE [Suspect]
     Active Substance: INFLUENZA VIRUS VACCINE
  12. INFLUENZA VIRUS VACCINE [Suspect]
     Active Substance: INFLUENZA VIRUS VACCINE
     Route: 051
  13. INFLUENZA VIRUS VACCINE [Suspect]
     Active Substance: INFLUENZA VIRUS VACCINE
  14. PNEUMOCOCCAL VACCINE POLYVALENT NOS [Suspect]
     Active Substance: PNEUMOCOCCAL VACCINE, POLYVALENT
     Indication: Immunisation
  15. PNEUMOCOCCAL VACCINE POLYVALENT NOS [Suspect]
     Active Substance: PNEUMOCOCCAL VACCINE, POLYVALENT
     Indication: Prophylaxis
  16. PNEUMOCOCCAL VACCINE POLYVALENT NOS [Suspect]
     Active Substance: PNEUMOCOCCAL VACCINE, POLYVALENT
     Indication: Immunisation
  17. PNEUMOCOCCAL VACCINE POLYVALENT NOS [Suspect]
     Active Substance: PNEUMOCOCCAL VACCINE, POLYVALENT
  18. PNEUMOCOCCAL VACCINE POLYVALENT NOS [Suspect]
     Active Substance: PNEUMOCOCCAL VACCINE, POLYVALENT
     Route: 065
  19. PNEUMOCOCCAL VACCINE POLYVALENT NOS [Suspect]
     Active Substance: PNEUMOCOCCAL VACCINE, POLYVALENT
     Route: 065
  20. PNEUMOCOCCAL VACCINE POLYVALENT NOS [Suspect]
     Active Substance: PNEUMOCOCCAL VACCINE, POLYVALENT
  21. PNEUMOCOCCAL VACCINE POLYVALENT NOS [Suspect]
     Active Substance: PNEUMOCOCCAL VACCINE, POLYVALENT
     Route: 065
  22. PNEUMOCOCCAL VACCINE POLYVALENT NOS [Suspect]
     Active Substance: PNEUMOCOCCAL VACCINE, POLYVALENT
  23. PNEUMOCOCCAL VACCINE POLYVALENT NOS [Suspect]
     Active Substance: PNEUMOCOCCAL VACCINE, POLYVALENT
  24. PNEUMOCOCCAL VACCINE POLYVALENT NOS [Suspect]
     Active Substance: PNEUMOCOCCAL VACCINE, POLYVALENT
  25. PNEUMOCOCCAL VACCINE POLYVALENT NOS [Suspect]
     Active Substance: PNEUMOCOCCAL VACCINE, POLYVALENT
  26. LEVOFLOXACIN [Suspect]
     Active Substance: LEVOFLOXACIN
     Indication: Product used for unknown indication
     Dosage: UNK
  27. LEVOFLOXACIN [Suspect]
     Active Substance: LEVOFLOXACIN
     Indication: Prophylaxis
  28. LEVOFLOXACIN [Suspect]
     Active Substance: LEVOFLOXACIN
  29. LEVOFLOXACIN [Suspect]
     Active Substance: LEVOFLOXACIN
     Dosage: HEMIHYDRATE
  30. LEVOFLOXACIN [Suspect]
     Active Substance: LEVOFLOXACIN
     Route: 065
  31. LEVOFLOXACIN [Suspect]
     Active Substance: LEVOFLOXACIN
     Dosage: NOT SPECIFIED
     Route: 065
  32. LEVOFLOXACIN [Suspect]
     Active Substance: LEVOFLOXACIN
     Dosage: NOT SPECIFIED
  33. LEVOFLOXACIN [Suspect]
     Active Substance: LEVOFLOXACIN
     Dosage: NOT SPECIFIED
  34. LEVOFLOXACIN [Suspect]
     Active Substance: LEVOFLOXACIN
     Dosage: NOT SPECIFIED
  35. LEVOFLOXACIN [Suspect]
     Active Substance: LEVOFLOXACIN
     Dosage: NOT SPECIFIED
     Route: 065
  36. LEVOFLOXACIN [Suspect]
     Active Substance: LEVOFLOXACIN
     Dosage: NOT SPECIFIED
  37. LEVOFLOXACIN [Suspect]
     Active Substance: LEVOFLOXACIN
     Dosage: NOT SPECIFIED
  38. LEVOFLOXACIN [Suspect]
     Active Substance: LEVOFLOXACIN
     Dosage: NOT SPECIFIED
  39. LEVOFLOXACIN [Suspect]
     Active Substance: LEVOFLOXACIN
  40. LEVOFLOXACIN [Suspect]
     Active Substance: LEVOFLOXACIN
     Dosage: UNK UNK, UNKNOWN FREQ.
     Route: 065
  41. LEVOFLOXACIN [Suspect]
     Active Substance: LEVOFLOXACIN
     Dosage: NOT SPECIFIED
  42. LEVOFLOXACIN [Suspect]
     Active Substance: LEVOFLOXACIN
     Dosage: NOT SPECIFIED
  43. LEVOFLOXACIN [Suspect]
     Active Substance: LEVOFLOXACIN
     Dosage: NOT SPECIFIED
  44. LEVOFLOXACIN [Suspect]
     Active Substance: LEVOFLOXACIN
     Dosage: NOT SPECIFIED
  45. LEVOFLOXACIN [Suspect]
     Active Substance: LEVOFLOXACIN
  46. LEVOFLOXACIN [Suspect]
     Active Substance: LEVOFLOXACIN
  47. ASPIRIN [Suspect]
     Active Substance: ASPIRIN
     Indication: Product used for unknown indication
     Dosage: UNK
  48. ASPIRIN [Suspect]
     Active Substance: ASPIRIN
     Dosage: UNK
  49. ASPIRIN [Suspect]
     Active Substance: ASPIRIN
     Dosage: UNK
  50. ASPIRIN [Suspect]
     Active Substance: ASPIRIN
     Dosage: UNK
  51. ASPIRIN [Suspect]
     Active Substance: ASPIRIN
     Dosage: NOT SPECIFIED
     Route: 065
  52. ASPIRIN [Suspect]
     Active Substance: ASPIRIN
     Dosage: NOT SPECIFIED
  53. ASPIRIN [Suspect]
     Active Substance: ASPIRIN
     Dosage: NOT SPECIFIED
  54. ASPIRIN [Suspect]
     Active Substance: ASPIRIN
     Dosage: NOT SPECIFIED
     Route: 065
  55. ASPIRIN [Suspect]
     Active Substance: ASPIRIN
     Dosage: NOT SPECIFIED
  56. ASPIRIN [Suspect]
     Active Substance: ASPIRIN
     Dosage: NOT SPECIFIED
  57. ASPIRIN [Suspect]
     Active Substance: ASPIRIN
  58. ASPIRIN [Suspect]
     Active Substance: ASPIRIN
     Dosage: UNK UNK, UNKNOWN FREQ.
     Route: 065
  59. ASPIRIN [Suspect]
     Active Substance: ASPIRIN
     Dosage: NOT SPECIFIED
  60. ASPIRIN [Suspect]
     Active Substance: ASPIRIN
     Dosage: NOT SPECIFIED
  61. ASPIRIN [Suspect]
     Active Substance: ASPIRIN
  62. ASPIRIN [Suspect]
     Active Substance: ASPIRIN
  63. ASPIRIN [Suspect]
     Active Substance: ASPIRIN
  64. ASPIRIN [Suspect]
     Active Substance: ASPIRIN
  65. BUDESONIDE [Suspect]
     Active Substance: BUDESONIDE
     Indication: Asthma
     Dosage: 2 DF, QD
     Route: 065
  66. BUDESONIDE [Suspect]
     Active Substance: BUDESONIDE
     Dosage: 4 DF, QD
     Route: 065
  67. BUDESONIDE [Suspect]
     Active Substance: BUDESONIDE
     Dosage: 1 DF, QD
  68. BUDESONIDE [Suspect]
     Active Substance: BUDESONIDE
     Dosage: 2 DF, Q12H
     Route: 065
  69. BUDESONIDE [Suspect]
     Active Substance: BUDESONIDE
  70. BUDESONIDE [Suspect]
     Active Substance: BUDESONIDE
     Route: 055
  71. BUDESONIDE [Suspect]
     Active Substance: BUDESONIDE
  72. BUDESONIDE [Suspect]
     Active Substance: BUDESONIDE
  73. ACETYLCYSTEINE [Suspect]
     Active Substance: ACETYLCYSTEINE
     Indication: Product used for unknown indication
     Dosage: UNK
     Route: 055
  74. ACETYLCYSTEINE [Suspect]
     Active Substance: ACETYLCYSTEINE
     Indication: Product used for unknown indication
     Route: 065
  75. ACETYLCYSTEINE [Suspect]
     Active Substance: ACETYLCYSTEINE
     Route: 065
  76. ACETYLCYSTEINE [Suspect]
     Active Substance: ACETYLCYSTEINE
     Route: 065
  77. ACETYLCYSTEINE [Suspect]
     Active Substance: ACETYLCYSTEINE
     Route: 065
  78. ACETYLCYSTEINE [Suspect]
     Active Substance: ACETYLCYSTEINE
     Route: 065
  79. ACETYLCYSTEINE [Suspect]
     Active Substance: ACETYLCYSTEINE
  80. ACETYLCYSTEINE [Suspect]
     Active Substance: ACETYLCYSTEINE
     Dosage: UNK
  81. ACETYLCYSTEINE [Suspect]
     Active Substance: ACETYLCYSTEINE
  82. ACETYLCYSTEINE [Suspect]
     Active Substance: ACETYLCYSTEINE
  83. ACETYLCYSTEINE [Suspect]
     Active Substance: ACETYLCYSTEINE
     Dosage: UNK
  84. ACETYLCYSTEINE [Suspect]
     Active Substance: ACETYLCYSTEINE
     Dosage: UNK
  85. ACETYLCYSTEINE [Suspect]
     Active Substance: ACETYLCYSTEINE
     Route: 065
  86. ACETYLCYSTEINE [Suspect]
     Active Substance: ACETYLCYSTEINE
     Route: 065
  87. ACETYLCYSTEINE [Suspect]
     Active Substance: ACETYLCYSTEINE
     Route: 055
  88. ACETYLCYSTEINE [Suspect]
     Active Substance: ACETYLCYSTEINE
  89. ACETYLCYSTEINE [Suspect]
     Active Substance: ACETYLCYSTEINE
  90. ACETYLCYSTEINE [Suspect]
     Active Substance: ACETYLCYSTEINE
  91. ACETYLCYSTEINE [Suspect]
     Active Substance: ACETYLCYSTEINE
     Dosage: UNK UNK, UNKNOWN FREQ.
     Route: 065
  92. ACETYLCYSTEINE [Suspect]
     Active Substance: ACETYLCYSTEINE
  93. ACETYLCYSTEINE [Suspect]
     Active Substance: ACETYLCYSTEINE
  94. ACETYLCYSTEINE [Suspect]
     Active Substance: ACETYLCYSTEINE
  95. ACETYLCYSTEINE [Suspect]
     Active Substance: ACETYLCYSTEINE
     Route: 055
  96. ACETYLCYSTEINE [Suspect]
     Active Substance: ACETYLCYSTEINE
  97. MESALAMINE [Suspect]
     Active Substance: MESALAMINE
     Indication: Product used for unknown indication
     Route: 065
  98. MESALAMINE [Suspect]
     Active Substance: MESALAMINE
     Route: 065
  99. MESALAMINE [Suspect]
     Active Substance: MESALAMINE
  100. MESALAMINE [Suspect]
     Active Substance: MESALAMINE
  101. MESALAMINE [Suspect]
     Active Substance: MESALAMINE
     Dosage: UNK UNK, UNKNOWN FREQ.
     Route: 065
  102. MESALAMINE [Suspect]
     Active Substance: MESALAMINE
     Route: 065
  103. MESALAMINE [Suspect]
     Active Substance: MESALAMINE
  104. MESALAMINE [Suspect]
     Active Substance: MESALAMINE
  105. AMLODIPINE BESYLATE [Suspect]
     Active Substance: AMLODIPINE BESYLATE
     Indication: Product used for unknown indication
     Dosage: UNK
  106. AMLODIPINE BESYLATE [Suspect]
     Active Substance: AMLODIPINE BESYLATE
     Indication: Product used for unknown indication
     Dosage: UNK
  107. AMLODIPINE BESYLATE [Suspect]
     Active Substance: AMLODIPINE BESYLATE
     Route: 065
  108. AMLODIPINE BESYLATE [Suspect]
     Active Substance: AMLODIPINE BESYLATE
     Route: 065
  109. AMLODIPINE BESYLATE [Suspect]
     Active Substance: AMLODIPINE BESYLATE
     Dosage: UNK UNK, UNKNOWN FREQ.
     Route: 065
  110. AMLODIPINE BESYLATE [Suspect]
     Active Substance: AMLODIPINE BESYLATE
  111. AMLODIPINE BESYLATE [Suspect]
     Active Substance: AMLODIPINE BESYLATE
  112. ASACOL [Suspect]
     Active Substance: MESALAMINE
     Indication: Product used for unknown indication
     Dosage: UNK
  113. ASACOL [Suspect]
     Active Substance: MESALAMINE
     Indication: Product used for unknown indication
     Route: 065
  114. ASACOL [Suspect]
     Active Substance: MESALAMINE
  115. ASACOL [Suspect]
     Active Substance: MESALAMINE
  116. ASACOL [Suspect]
     Active Substance: MESALAMINE
     Dosage: UNK
  117. ASACOL [Suspect]
     Active Substance: MESALAMINE
  118. ASACOL [Suspect]
     Active Substance: MESALAMINE
     Dosage: UNK
  119. ASACOL [Suspect]
     Active Substance: MESALAMINE
     Dosage: TABLET (ENTERICCOATED)
     Route: 065
  120. ASACOL [Suspect]
     Active Substance: MESALAMINE
     Dosage: TABLET (ENTERICCOATED)
     Route: 065
  121. ASACOL [Suspect]
     Active Substance: MESALAMINE
  122. ASACOL [Suspect]
     Active Substance: MESALAMINE
     Dosage: UNK UNK, UNKNOWN FREQ.
     Route: 065
  123. ASACOL [Suspect]
     Active Substance: MESALAMINE
     Dosage: TABLET (ENTERICCOATED)
  124. ASACOL [Suspect]
     Active Substance: MESALAMINE
  125. ASACOL [Suspect]
     Active Substance: MESALAMINE
  126. ASACOL [Suspect]
     Active Substance: MESALAMINE
  127. AZITHROMYCIN [Suspect]
     Active Substance: AZITHROMYCIN
     Indication: Product used for unknown indication
     Dosage: UNK
  128. AZITHROMYCIN [Suspect]
     Active Substance: AZITHROMYCIN
     Dosage: UNK
  129. AZITHROMYCIN [Suspect]
     Active Substance: AZITHROMYCIN
  130. AZITHROMYCIN [Suspect]
     Active Substance: AZITHROMYCIN
  131. AZITHROMYCIN [Suspect]
     Active Substance: AZITHROMYCIN
     Dosage: UNK
  132. AZITHROMYCIN [Suspect]
     Active Substance: AZITHROMYCIN
  133. AZITHROMYCIN [Suspect]
     Active Substance: AZITHROMYCIN
  134. AZITHROMYCIN [Suspect]
     Active Substance: AZITHROMYCIN
  135. AZITHROMYCIN [Suspect]
     Active Substance: AZITHROMYCIN
     Dosage: UNK
  136. AZITHROMYCIN [Suspect]
     Active Substance: AZITHROMYCIN
     Dosage: PMS
     Route: 065
  137. AZITHROMYCIN [Suspect]
     Active Substance: AZITHROMYCIN
     Dosage: PMS
  138. AZITHROMYCIN [Suspect]
     Active Substance: AZITHROMYCIN
     Dosage: NOT SPECIFIED
  139. AZITHROMYCIN [Suspect]
     Active Substance: AZITHROMYCIN
     Dosage: PMS
     Route: 065
  140. AZITHROMYCIN [Suspect]
     Active Substance: AZITHROMYCIN
     Dosage: PMS
  141. AZITHROMYCIN [Suspect]
     Active Substance: AZITHROMYCIN
     Dosage: NOT SPECIFIED
  142. AZITHROMYCIN [Suspect]
     Active Substance: AZITHROMYCIN
  143. AZITHROMYCIN [Suspect]
     Active Substance: AZITHROMYCIN
     Dosage: UNK UNK, UNKNOWN FREQ.
     Route: 065
  144. AZITHROMYCIN [Suspect]
     Active Substance: AZITHROMYCIN
     Dosage: PMS
  145. AZITHROMYCIN [Suspect]
     Active Substance: AZITHROMYCIN
     Dosage: PMS
  146. AZITHROMYCIN [Suspect]
     Active Substance: AZITHROMYCIN
     Dosage: NOT SPECIFIED
  147. AZITHROMYCIN [Suspect]
     Active Substance: AZITHROMYCIN
  148. AZITHROMYCIN [Suspect]
     Active Substance: AZITHROMYCIN
  149. BUDESONIDE\FORMOTEROL FUMARATE [Suspect]
     Active Substance: BUDESONIDE\FORMOTEROL FUMARATE
     Indication: Asthma
     Dosage: 2 DF, BID
  150. BUDESONIDE\FORMOTEROL FUMARATE [Suspect]
     Active Substance: BUDESONIDE\FORMOTEROL FUMARATE
     Dosage: 1 DF, QD
     Route: 055
  151. BUDESONIDE\FORMOTEROL FUMARATE [Suspect]
     Active Substance: BUDESONIDE\FORMOTEROL FUMARATE
     Dosage: 2 DF, QD
  152. BUDESONIDE\FORMOTEROL FUMARATE [Suspect]
     Active Substance: BUDESONIDE\FORMOTEROL FUMARATE
     Dosage: 4 DF
  153. BUDESONIDE\FORMOTEROL FUMARATE [Suspect]
     Active Substance: BUDESONIDE\FORMOTEROL FUMARATE
     Dosage: 1 DF
     Route: 055
  154. CICLESONIDE [Suspect]
     Active Substance: CICLESONIDE
     Indication: Product used for unknown indication
     Dosage: UNK
     Route: 055
  155. CICLESONIDE [Suspect]
     Active Substance: CICLESONIDE
     Indication: Product used for unknown indication
     Route: 055
  156. CICLESONIDE [Suspect]
     Active Substance: CICLESONIDE
     Dosage: UNK
  157. CICLESONIDE [Suspect]
     Active Substance: CICLESONIDE
     Route: 065
  158. CICLESONIDE [Suspect]
     Active Substance: CICLESONIDE
     Route: 065
  159. CICLESONIDE [Suspect]
     Active Substance: CICLESONIDE
  160. CICLESONIDE [Suspect]
     Active Substance: CICLESONIDE
     Dosage: UNK UNK, UNKNOWN FREQ. (FOA:AEROSOL, METERED DOSE)
     Route: 065
  161. CICLESONIDE [Suspect]
     Active Substance: CICLESONIDE
     Dosage: UNK UNK, UNKNOWN FREQ.
     Route: 055
  162. CICLESONIDE [Suspect]
     Active Substance: CICLESONIDE
  163. CICLESONIDE [Suspect]
     Active Substance: CICLESONIDE
  164. CICLESONIDE [Suspect]
     Active Substance: CICLESONIDE
  165. CICLESONIDE [Suspect]
     Active Substance: CICLESONIDE
     Route: 055
  166. DOXYCYCLINE [Suspect]
     Active Substance: DOXYCYCLINE\DOXYCYCLINE HYCLATE
     Indication: Product used for unknown indication
     Dosage: UNK
  167. DOXYCYCLINE [Suspect]
     Active Substance: DOXYCYCLINE\DOXYCYCLINE HYCLATE
  168. DOXYCYCLINE [Suspect]
     Active Substance: DOXYCYCLINE\DOXYCYCLINE HYCLATE
     Dosage: UNK
  169. DOXYCYCLINE [Suspect]
     Active Substance: DOXYCYCLINE\DOXYCYCLINE HYCLATE
  170. DOXYCYCLINE [Suspect]
     Active Substance: DOXYCYCLINE\DOXYCYCLINE HYCLATE
  171. DOXYCYCLINE [Suspect]
     Active Substance: DOXYCYCLINE\DOXYCYCLINE HYCLATE
  172. DOXYCYCLINE [Suspect]
     Active Substance: DOXYCYCLINE\DOXYCYCLINE HYCLATE
  173. DOXYCYCLINE [Suspect]
     Active Substance: DOXYCYCLINE\DOXYCYCLINE HYCLATE
     Route: 065
  174. DOXYCYCLINE [Suspect]
     Active Substance: DOXYCYCLINE\DOXYCYCLINE HYCLATE
     Route: 065
  175. DOXYCYCLINE [Suspect]
     Active Substance: DOXYCYCLINE\DOXYCYCLINE HYCLATE
  176. DOXYCYCLINE [Suspect]
     Active Substance: DOXYCYCLINE\DOXYCYCLINE HYCLATE
  177. DOXYCYCLINE [Suspect]
     Active Substance: DOXYCYCLINE\DOXYCYCLINE HYCLATE
     Dosage: UNK UNK, UNKNOWN FREQ.
     Route: 065
  178. DOXYCYCLINE [Suspect]
     Active Substance: DOXYCYCLINE\DOXYCYCLINE HYCLATE
     Dosage: NOT SPECIFIED
  179. DOXYCYCLINE [Suspect]
     Active Substance: DOXYCYCLINE\DOXYCYCLINE HYCLATE
     Dosage: NOT SPECIFIED
  180. DOXYCYCLINE [Suspect]
     Active Substance: DOXYCYCLINE\DOXYCYCLINE HYCLATE
  181. DOXYCYCLINE [Suspect]
     Active Substance: DOXYCYCLINE\DOXYCYCLINE HYCLATE
  182. MELATONIN [Suspect]
     Active Substance: MELATONIN
     Indication: Product used for unknown indication
     Dosage: UNK
  183. MELATONIN [Suspect]
     Active Substance: MELATONIN
     Dosage: UNK
  184. MELATONIN [Suspect]
     Active Substance: MELATONIN
  185. MELATONIN [Suspect]
     Active Substance: MELATONIN
  186. MELATONIN [Suspect]
     Active Substance: MELATONIN
     Dosage: UNK
  187. MELATONIN [Suspect]
     Active Substance: MELATONIN
  188. MELATONIN [Suspect]
     Active Substance: MELATONIN
  189. MELATONIN [Suspect]
     Active Substance: MELATONIN
     Dosage: UNK
  190. MELATONIN [Suspect]
     Active Substance: MELATONIN
     Dosage: UNK
  191. MELATONIN [Suspect]
     Active Substance: MELATONIN
     Route: 065
  192. MELATONIN [Suspect]
     Active Substance: MELATONIN
     Dosage: NOT SPECIFIED
  193. MELATONIN [Suspect]
     Active Substance: MELATONIN
     Route: 065
  194. MELATONIN [Suspect]
     Active Substance: MELATONIN
     Dosage: NOT SPECIFIED
  195. MELATONIN [Suspect]
     Active Substance: MELATONIN
  196. MELATONIN [Suspect]
     Active Substance: MELATONIN
     Dosage: UNK UNK, UNKNOWN FREQ.
     Route: 065
  197. MELATONIN [Suspect]
     Active Substance: MELATONIN
  198. MELATONIN [Suspect]
     Active Substance: MELATONIN
     Dosage: NOT SPECIFIED
  199. MELATONIN [Suspect]
     Active Substance: MELATONIN
  200. MELATONIN [Suspect]
     Active Substance: MELATONIN
  201. NAPROXEN [Suspect]
     Active Substance: NAPROXEN
     Indication: Product used for unknown indication
     Dosage: UNK
  202. NAPROXEN [Suspect]
     Active Substance: NAPROXEN
  203. NAPROXEN [Suspect]
     Active Substance: NAPROXEN
     Dosage: NOT SPECIFIED
     Route: 065
  204. NAPROXEN [Suspect]
     Active Substance: NAPROXEN
  205. NAPROXEN [Suspect]
     Active Substance: NAPROXEN
  206. NAPROXEN [Suspect]
     Active Substance: NAPROXEN
     Dosage: UNK
  207. NAPROXEN [Suspect]
     Active Substance: NAPROXEN
     Dosage: UNK
  208. NAPROXEN [Suspect]
     Active Substance: NAPROXEN
  209. NAPROXEN [Suspect]
     Active Substance: NAPROXEN
     Dosage: UNK
  210. NAPROXEN [Suspect]
     Active Substance: NAPROXEN
  211. NAPROXEN [Suspect]
     Active Substance: NAPROXEN
  212. NAPROXEN [Suspect]
     Active Substance: NAPROXEN
     Dosage: UNK
  213. NAPROXEN [Suspect]
     Active Substance: NAPROXEN
     Dosage: NOT SPECIFIED
     Route: 065
  214. NAPROXEN [Suspect]
     Active Substance: NAPROXEN
     Dosage: NOT SPECIFIED
  215. NAPROXEN [Suspect]
     Active Substance: NAPROXEN
     Dosage: NOT SPECIFIED
     Route: 065
  216. NAPROXEN [Suspect]
     Active Substance: NAPROXEN
     Dosage: NOT SPECIFIED
  217. NAPROXEN [Suspect]
     Active Substance: NAPROXEN
  218. NAPROXEN [Suspect]
     Active Substance: NAPROXEN
     Dosage: UNK UNK, UNKNOWN FREQ.
     Route: 065
  219. NAPROXEN [Suspect]
     Active Substance: NAPROXEN
     Dosage: NOT SPECIFIED
  220. NAPROXEN [Suspect]
     Active Substance: NAPROXEN
     Dosage: NOT SPECIFIED
  221. NAPROXEN [Suspect]
     Active Substance: NAPROXEN
  222. NAPROXEN [Suspect]
     Active Substance: NAPROXEN
  223. NAPROXEN SODIUM [Suspect]
     Active Substance: NAPROXEN\NAPROXEN SODIUM
     Indication: Product used for unknown indication
     Dosage: UNK
  224. NAPROXEN SODIUM [Suspect]
     Active Substance: NAPROXEN\NAPROXEN SODIUM
     Dosage: UNK
  225. NAPROXEN SODIUM [Suspect]
     Active Substance: NAPROXEN\NAPROXEN SODIUM
     Dosage: NOT SPECIFIED
     Route: 065
  226. NAPROXEN SODIUM [Suspect]
     Active Substance: NAPROXEN\NAPROXEN SODIUM
  227. NAPROXEN SODIUM [Suspect]
     Active Substance: NAPROXEN\NAPROXEN SODIUM
     Dosage: UNK UNK, UNKNOWN FREQ.
     Route: 065
  228. NAPROXEN SODIUM [Suspect]
     Active Substance: NAPROXEN\NAPROXEN SODIUM
     Dosage: NOT SPECIFIED
  229. NAPROXEN SODIUM [Suspect]
     Active Substance: NAPROXEN\NAPROXEN SODIUM
  230. PREGABALIN [Suspect]
     Active Substance: PREGABALIN
     Indication: Product used for unknown indication
     Dosage: UNK
  231. PREGABALIN [Suspect]
     Active Substance: PREGABALIN
  232. PREGABALIN [Suspect]
     Active Substance: PREGABALIN
     Dosage: UNK
  233. PREGABALIN [Suspect]
     Active Substance: PREGABALIN
  234. PREGABALIN [Suspect]
     Active Substance: PREGABALIN
     Dosage: UNK
  235. PREGABALIN [Suspect]
     Active Substance: PREGABALIN
     Route: 065
  236. PREGABALIN [Suspect]
     Active Substance: PREGABALIN
     Route: 065
  237. PREGABALIN [Suspect]
     Active Substance: PREGABALIN
  238. PREGABALIN [Suspect]
     Active Substance: PREGABALIN
     Dosage: UNK UNK, UNKNOWN FREQ.
     Route: 065
  239. PREGABALIN [Suspect]
     Active Substance: PREGABALIN
  240. PREGABALIN [Suspect]
     Active Substance: PREGABALIN
  241. PREGABALIN [Suspect]
     Active Substance: PREGABALIN
  242. PREGABALIN [Suspect]
     Active Substance: PREGABALIN
  243. PREDNISONE [Suspect]
     Active Substance: PREDNISONE
     Indication: Asthma
     Dosage: UNK
  244. PREDNISONE [Suspect]
     Active Substance: PREDNISONE
     Indication: Product used for unknown indication
  245. PREDNISONE [Suspect]
     Active Substance: PREDNISONE
     Dosage: ONGOING
  246. PREDNISONE [Suspect]
     Active Substance: PREDNISONE
  247. PREDNISONE [Suspect]
     Active Substance: PREDNISONE
     Dosage: ONGOING
  248. PREDNISONE [Suspect]
     Active Substance: PREDNISONE
     Dosage: UNK
  249. PREDNISONE [Suspect]
     Active Substance: PREDNISONE
     Dosage: UNK
  250. PREDNISONE [Suspect]
     Active Substance: PREDNISONE
     Dosage: NOT SPECIFIED
     Route: 065
  251. PREDNISONE [Suspect]
     Active Substance: PREDNISONE
     Dosage: NOT SPECIFIED
     Route: 065
  252. PREDNISONE [Suspect]
     Active Substance: PREDNISONE
  253. PREDNISONE [Suspect]
     Active Substance: PREDNISONE
     Dosage: UNK UNK, UNKNOWN FREQ.
     Route: 065
  254. PREDNISONE [Suspect]
     Active Substance: PREDNISONE
     Dosage: NOT SPECIFIED
  255. PREDNISONE [Suspect]
     Active Substance: PREDNISONE
  256. PREDNISONE [Suspect]
     Active Substance: PREDNISONE
  257. PANTOPRAZOLE [Suspect]
     Active Substance: PANTOPRAZOLE
     Indication: Product used for unknown indication
     Dosage: UNK
  258. PANTOPRAZOLE [Suspect]
     Active Substance: PANTOPRAZOLE
     Indication: Product used for unknown indication
     Route: 065
  259. PANTOPRAZOLE [Suspect]
     Active Substance: PANTOPRAZOLE
     Dosage: UNK
  260. PANTOPRAZOLE [Suspect]
     Active Substance: PANTOPRAZOLE
     Dosage: UNK
  261. PANTOPRAZOLE [Suspect]
     Active Substance: PANTOPRAZOLE
     Dosage: UNK
  262. PANTOPRAZOLE [Suspect]
     Active Substance: PANTOPRAZOLE
     Dosage: NOT SPECIFIED
     Route: 065
  263. PANTOPRAZOLE [Suspect]
     Active Substance: PANTOPRAZOLE
     Dosage: NOT SPECIFIED
     Route: 065
  264. PANTOPRAZOLE [Suspect]
     Active Substance: PANTOPRAZOLE
  265. PANTOPRAZOLE [Suspect]
     Active Substance: PANTOPRAZOLE
     Dosage: UNK UNK, UNKNOWN FREQ.
     Route: 065
  266. PANTOPRAZOLE [Suspect]
     Active Substance: PANTOPRAZOLE
     Dosage: NOT SPECIFIED
  267. PANTOPRAZOLE [Suspect]
     Active Substance: PANTOPRAZOLE
  268. PANTOPRAZOLE [Suspect]
     Active Substance: PANTOPRAZOLE
  269. PANTOPRAZOLE SODIUM [Suspect]
     Active Substance: PANTOPRAZOLE SODIUM
     Indication: Product used for unknown indication
     Dosage: UNK
  270. PANTOPRAZOLE SODIUM [Suspect]
     Active Substance: PANTOPRAZOLE SODIUM
     Dosage: ANHYDROUS
  271. PANTOPRAZOLE SODIUM [Suspect]
     Active Substance: PANTOPRAZOLE SODIUM
     Dosage: UNK UNK, UNKNOWN FREQ.
     Route: 065
  272. PANTOPRAZOLE SODIUM [Suspect]
     Active Substance: PANTOPRAZOLE SODIUM
     Dosage: ANHYDROUS
  273. PANTOPRAZOLE SODIUM [Suspect]
     Active Substance: PANTOPRAZOLE SODIUM
     Dosage: ANHYDROUS
  274. RAMIPRIL [Suspect]
     Active Substance: RAMIPRIL
     Indication: Asthma
     Dosage: UNK
     Route: 048
  275. RAMIPRIL [Suspect]
     Active Substance: RAMIPRIL
     Indication: Prophylaxis
     Dosage: UNK
  276. RAMIPRIL [Suspect]
     Active Substance: RAMIPRIL
     Route: 065
  277. RAMIPRIL [Suspect]
     Active Substance: RAMIPRIL
     Dosage: UNK
     Route: 048
  278. RAMIPRIL [Suspect]
     Active Substance: RAMIPRIL
     Route: 048
  279. RAMIPRIL [Suspect]
     Active Substance: RAMIPRIL
     Route: 048
  280. RAMIPRIL [Suspect]
     Active Substance: RAMIPRIL
     Route: 048
  281. RAMIPRIL [Suspect]
     Active Substance: RAMIPRIL
     Dosage: UNK
     Route: 048
  282. RAMIPRIL [Suspect]
     Active Substance: RAMIPRIL
     Dosage: UNK
     Route: 048
  283. RAMIPRIL [Suspect]
     Active Substance: RAMIPRIL
     Dosage: NOT SPECIFIED
     Route: 065
  284. RAMIPRIL [Suspect]
     Active Substance: RAMIPRIL
     Dosage: NOT SPECIFIED
  285. RAMIPRIL [Suspect]
     Active Substance: RAMIPRIL
     Dosage: NOT SPECIFIED
  286. RAMIPRIL [Suspect]
     Active Substance: RAMIPRIL
     Dosage: NOT SPECIFIED
  287. RAMIPRIL [Suspect]
     Active Substance: RAMIPRIL
     Route: 048
  288. RAMIPRIL [Suspect]
     Active Substance: RAMIPRIL
     Dosage: NOT SPECIFIED
     Route: 065
  289. RAMIPRIL [Suspect]
     Active Substance: RAMIPRIL
     Dosage: NOT SPECIFIED
  290. RAMIPRIL [Suspect]
     Active Substance: RAMIPRIL
     Dosage: NOT SPECIFIED
  291. RAMIPRIL [Suspect]
     Active Substance: RAMIPRIL
     Dosage: NOT SPECIFIED
  292. RAMIPRIL [Suspect]
     Active Substance: RAMIPRIL
     Route: 048
  293. RAMIPRIL [Suspect]
     Active Substance: RAMIPRIL
     Route: 048
  294. RAMIPRIL [Suspect]
     Active Substance: RAMIPRIL
     Dosage: NOT SPECIFIED
  295. RAMIPRIL [Suspect]
     Active Substance: RAMIPRIL
  296. RAMIPRIL [Suspect]
     Active Substance: RAMIPRIL
     Dosage: NOT SPECIFIED
  297. RAMIPRIL [Suspect]
     Active Substance: RAMIPRIL
     Dosage: NOT SPECIFIED
  298. RAMIPRIL [Suspect]
     Active Substance: RAMIPRIL
     Dosage: NOT SPECIFIED
  299. RAMIPRIL [Suspect]
     Active Substance: RAMIPRIL
     Route: 048
  300. RAMIPRIL [Suspect]
     Active Substance: RAMIPRIL
     Dosage: UNK UNK, UNKNOWN FREQ.
     Route: 065
  301. RAMIPRIL [Suspect]
     Active Substance: RAMIPRIL
     Dosage: UNK UNK, UNKNOWN FREQ.
     Route: 065
  302. RAMIPRIL [Suspect]
     Active Substance: RAMIPRIL
     Dosage: NOT SPECIFIED
     Route: 065
  303. RAMIPRIL [Suspect]
     Active Substance: RAMIPRIL
  304. RAMIPRIL [Suspect]
     Active Substance: RAMIPRIL
     Dosage: NOT SPECIFIED
  305. RAMIPRIL [Suspect]
     Active Substance: RAMIPRIL
     Dosage: NOT SPECIFIED
  306. RAMIPRIL [Suspect]
     Active Substance: RAMIPRIL
     Dosage: NOT SPECIFIED
  307. RAMIPRIL [Suspect]
     Active Substance: RAMIPRIL
     Route: 048
  308. RAMIPRIL [Suspect]
     Active Substance: RAMIPRIL
     Route: 048
  309. RAMIPRIL [Suspect]
     Active Substance: RAMIPRIL
     Route: 048
  310. ROSUVASTATIN [Suspect]
     Active Substance: ROSUVASTATIN\ROSUVASTATIN CALCIUM
     Indication: Asthma
     Dosage: 1 DF, Q12H
     Route: 048
  311. ROSUVASTATIN [Suspect]
     Active Substance: ROSUVASTATIN\ROSUVASTATIN CALCIUM
     Route: 065
  312. ROSUVASTATIN [Suspect]
     Active Substance: ROSUVASTATIN\ROSUVASTATIN CALCIUM
     Route: 065
  313. ROSUVASTATIN [Suspect]
     Active Substance: ROSUVASTATIN\ROSUVASTATIN CALCIUM
  314. ROSUVASTATIN [Suspect]
     Active Substance: ROSUVASTATIN\ROSUVASTATIN CALCIUM
  315. ROSUVASTATIN [Suspect]
     Active Substance: ROSUVASTATIN\ROSUVASTATIN CALCIUM
  316. ROSUVASTATIN [Suspect]
     Active Substance: ROSUVASTATIN\ROSUVASTATIN CALCIUM
  317. ROSUVASTATIN CALCIUM [Suspect]
     Active Substance: ROSUVASTATIN CALCIUM
     Indication: Asthma
     Dosage: UNK
     Route: 048
  318. ROSUVASTATIN CALCIUM [Suspect]
     Active Substance: ROSUVASTATIN CALCIUM
     Indication: Product used for unknown indication
     Route: 048
  319. ROSUVASTATIN CALCIUM [Suspect]
     Active Substance: ROSUVASTATIN CALCIUM
     Indication: Product used for unknown indication
     Dosage: UNK
     Route: 048
  320. ROSUVASTATIN CALCIUM [Suspect]
     Active Substance: ROSUVASTATIN CALCIUM
     Route: 048
  321. ROSUVASTATIN CALCIUM [Suspect]
     Active Substance: ROSUVASTATIN CALCIUM
     Route: 048
  322. ROSUVASTATIN CALCIUM [Suspect]
     Active Substance: ROSUVASTATIN CALCIUM
     Route: 048
  323. ROSUVASTATIN CALCIUM [Suspect]
     Active Substance: ROSUVASTATIN CALCIUM
     Dosage: UNK
     Route: 048
  324. ROSUVASTATIN CALCIUM [Suspect]
     Active Substance: ROSUVASTATIN CALCIUM
     Route: 065
  325. ROSUVASTATIN CALCIUM [Suspect]
     Active Substance: ROSUVASTATIN CALCIUM
     Route: 048
  326. ROSUVASTATIN CALCIUM [Suspect]
     Active Substance: ROSUVASTATIN CALCIUM
     Route: 065
  327. ROSUVASTATIN CALCIUM [Suspect]
     Active Substance: ROSUVASTATIN CALCIUM
     Route: 048
  328. ROSUVASTATIN CALCIUM [Suspect]
     Active Substance: ROSUVASTATIN CALCIUM
     Route: 048
  329. ROSUVASTATIN CALCIUM [Suspect]
     Active Substance: ROSUVASTATIN CALCIUM
     Dosage: UNK
     Route: 065
  330. ROSUVASTATIN CALCIUM [Suspect]
     Active Substance: ROSUVASTATIN CALCIUM
  331. ROSUVASTATIN CALCIUM [Suspect]
     Active Substance: ROSUVASTATIN CALCIUM
     Route: 048
  332. ROSUVASTATIN CALCIUM [Suspect]
     Active Substance: ROSUVASTATIN CALCIUM
     Route: 048
  333. ROSUVASTATIN CALCIUM [Suspect]
     Active Substance: ROSUVASTATIN CALCIUM
     Route: 048
  334. ROSUVASTATIN CALCIUM [Suspect]
     Active Substance: ROSUVASTATIN CALCIUM
     Route: 048
  335. ALBUTEROL SULFATE [Suspect]
     Active Substance: ALBUTEROL SULFATE
     Indication: Asthma
     Dosage: UNK
  336. ALBUTEROL SULFATE [Suspect]
     Active Substance: ALBUTEROL SULFATE
     Indication: Prophylaxis
     Dosage: UNK PUFF(S), PM, 100 MCG
  337. ALBUTEROL SULFATE [Suspect]
     Active Substance: ALBUTEROL SULFATE
     Dosage: UNK PUFF(S), PM- ONGOING
  338. ALBUTEROL SULFATE [Suspect]
     Active Substance: ALBUTEROL SULFATE
     Dosage: UNK PUFF(S), PM, 100 MCG
  339. ALBUTEROL SULFATE [Suspect]
     Active Substance: ALBUTEROL SULFATE
     Dosage: UNK
  340. ALBUTEROL SULFATE [Suspect]
     Active Substance: ALBUTEROL SULFATE
     Route: 065
  341. ALBUTEROL SULFATE [Suspect]
     Active Substance: ALBUTEROL SULFATE
  342. ALBUTEROL SULFATE [Suspect]
     Active Substance: ALBUTEROL SULFATE
     Route: 065
  343. ALBUTEROL SULFATE [Suspect]
     Active Substance: ALBUTEROL SULFATE
  344. ALBUTEROL SULFATE [Suspect]
     Active Substance: ALBUTEROL SULFATE
  345. ALBUTEROL SULFATE [Suspect]
     Active Substance: ALBUTEROL SULFATE
     Dosage: METERED-DOSE (AEROSOL)
  346. ALBUTEROL SULFATE [Suspect]
     Active Substance: ALBUTEROL SULFATE
  347. ALBUTEROL SULFATE [Suspect]
     Active Substance: ALBUTEROL SULFATE
     Dosage: UNK UNK, UNKNOWN FREQ.
     Route: 065
  348. ALBUTEROL SULFATE [Suspect]
     Active Substance: ALBUTEROL SULFATE
     Dosage: METERED-DOSE (AEROSOL)
     Route: 065
  349. ALBUTEROL SULFATE [Suspect]
     Active Substance: ALBUTEROL SULFATE
  350. ALBUTEROL SULFATE [Suspect]
     Active Substance: ALBUTEROL SULFATE
  351. ALBUTEROL SULFATE [Suspect]
     Active Substance: ALBUTEROL SULFATE
  352. ASPIRIN [Suspect]
     Active Substance: ASPIRIN
     Dosage: UNK
  353. ASPIRIN [Suspect]
     Active Substance: ASPIRIN
     Route: 065
  354. ASPIRIN [Suspect]
     Active Substance: ASPIRIN
     Route: 065
  355. DOXYCYCLINE HYDROCHLORIDE [Suspect]
     Active Substance: DOXYCYCLINE HYDROCHLORIDE
     Dosage: UNK
  356. TIOTROPIUM BROMIDE [Suspect]
     Active Substance: TIOTROPIUM BROMIDE
     Indication: Asthma
     Dosage: 1 DF, QD
  357. TIOTROPIUM BROMIDE [Suspect]
     Active Substance: TIOTROPIUM BROMIDE
     Route: 065
  358. TIOTROPIUM BROMIDE [Suspect]
     Active Substance: TIOTROPIUM BROMIDE
     Route: 065
  359. TIOTROPIUM BROMIDE [Suspect]
     Active Substance: TIOTROPIUM BROMIDE
     Route: 065
  360. TIOTROPIUM BROMIDE [Suspect]
     Active Substance: TIOTROPIUM BROMIDE
  361. TIOTROPIUM BROMIDE [Suspect]
     Active Substance: TIOTROPIUM BROMIDE
  362. TIOTROPIUM BROMIDE [Suspect]
     Active Substance: TIOTROPIUM BROMIDE
  363. TIOTROPIUM BROMIDE [Suspect]
     Active Substance: TIOTROPIUM BROMIDE
  364. TIOTROPIUM BROMIDE [Suspect]
     Active Substance: TIOTROPIUM BROMIDE
  365. AMLODIPINE [Suspect]
     Active Substance: AMLODIPINE BESYLATE
     Dosage: UNK
     Route: 065
  366. AMLODIPINE MALEATE [Suspect]
     Active Substance: AMLODIPINE MALEATE
     Dosage: UNK
     Route: 065
  367. FINASTERIDE\TAMSULOSIN [Suspect]
     Active Substance: FINASTERIDE\TAMSULOSIN
     Dosage: UNK
  368. PREVNAR [Suspect]
     Active Substance: PNEUMOCOCCAL 7-VALENT CONJUGATE VACCINE (DIPHTHERIA CRM197 PROTEIN)
     Indication: Prophylaxis
     Dosage: UNK
  369. PREVNAR [Suspect]
     Active Substance: PNEUMOCOCCAL 7-VALENT CONJUGATE VACCINE (DIPHTHERIA CRM197 PROTEIN)
     Dosage: UNK
  370. PREVNAR [Suspect]
     Active Substance: PNEUMOCOCCAL 7-VALENT CONJUGATE VACCINE (DIPHTHERIA CRM197 PROTEIN)
     Dosage: SUSPENSION?INTRAMUSCULAR
     Route: 065
  371. PREVNAR [Suspect]
     Active Substance: PNEUMOCOCCAL 7-VALENT CONJUGATE VACCINE (DIPHTHERIA CRM197 PROTEIN)
     Dosage: SUSPENSION?INTRAMUSCULAR
     Route: 065
  372. PREVNAR [Suspect]
     Active Substance: PNEUMOCOCCAL 7-VALENT CONJUGATE VACCINE (DIPHTHERIA CRM197 PROTEIN)
     Dosage: SUSPENSION INTRAMUSCULAR

REACTIONS (2)
  - Transient ischaemic attack [Unknown]
  - Asthma [Unknown]
